FAERS Safety Report 5260614-6 (Version None)
Quarter: 2007Q1

REPORT INFORMATION
  Report Type: 
  Country: None (occurrence: None)
  Receive Date: 20070309
  Receipt Date: 20061120
  Transmission Date: 20070707
  Serious: No
  Sender: FDA-Public Use
  Company Number: US-GLAXOSMITHKLINE-A0627897A

PATIENT
  Age: 46 Year
  Sex: Female

DRUGS (2)
  1. NICORETTE (MINT) [Suspect]
  2. HORMONE REPLACEMENT [Suspect]
     Indication: HORMONE REPLACEMENT THERAPY
     Route: 065
     Dates: start: 20060801

REACTIONS (4)
  - ABDOMINAL DISTENSION [None]
  - FLUID RETENTION [None]
  - INTENTIONAL DRUG MISUSE [None]
  - SWELLING [None]
